FAERS Safety Report 4878993-8 (Version None)
Quarter: 2006Q1

REPORT INFORMATION
  Report Type: 
  Country: None (occurrence: None)
  Receive Date: 20060112
  Receipt Date: 20050218
  Transmission Date: 20060701
  Serious: Yes (Hospitalization)
  Sender: FDA-Public Use
  Company Number: US-MERCK-0502USA02889

PATIENT
  Age: 80 Year
  Sex: Female

DRUGS (8)
  1. VIOXX [Suspect]
     Route: 048
     Dates: start: 20011001
  2. DILTIAZEM MALATE [Concomitant]
     Route: 065
  3. DIOVAN [Concomitant]
     Route: 065
  4. HYDROCHLOROTHIAZIDE [Concomitant]
     Route: 065
  5. PAXIL [Concomitant]
     Route: 065
  6. PROTONIX [Concomitant]
     Route: 065
  7. ZYRTEC [Concomitant]
     Route: 065
  8. GLUCOSAMINE [Concomitant]
     Route: 065

REACTIONS (10)
  - ARTHROPATHY [None]
  - ATRIOVENTRICULAR BLOCK FIRST DEGREE [None]
  - ATRIOVENTRICULAR BLOCK SECOND DEGREE [None]
  - BALANCE DISORDER [None]
  - BRADYCARDIA [None]
  - CEREBROVASCULAR ACCIDENT [None]
  - DIZZINESS [None]
  - FALL [None]
  - FATIGUE [None]
  - LACUNAR INFARCTION [None]
